FAERS Safety Report 7900526-X (Version None)
Quarter: 2011Q4

REPORT INFORMATION
  Report Type: 
  Country: None (occurrence: None)
  Receive Date: 20111108
  Receipt Date: 20111104
  Transmission Date: 20120403
  Serious: Yes (Death, Hospitalization, Other)
  Sender: FDA-Public Use
  Company Number: DE-BRISTOL-MYERS SQUIBB COMPANY-16036329

PATIENT
  Age: 68 Year
  Sex: Male
  Weight: 73 kg

DRUGS (4)
  1. LEVOFLOXACIN [Concomitant]
     Dates: start: 20110712, end: 20110721
  2. CLINUTREN [Concomitant]
     Dates: start: 20110725
  3. LEVOTHYROXINE SODIUM [Concomitant]
     Indication: HYPOTHYROIDISM
  4. YERVOY [Suspect]
     Indication: METASTATIC MALIGNANT MELANOMA
     Dosage: RECEIVED 2 DOSES (25JUL AND 15AUG11). 3MG/KG, RECEIVED IN 0.9PERCENT SODIUM CHLORIDE FOR 90 MINS.
     Route: 042
     Dates: start: 20110725, end: 20110815

REACTIONS (14)
  - CARDIOVASCULAR DISORDER [None]
  - LYMPHOCYTOSIS [None]
  - CEREBRAL HAEMORRHAGE [None]
  - GASTROINTESTINAL HAEMORRHAGE [None]
  - DIZZINESS [None]
  - BLAST CELL PROLIFERATION [None]
  - GENERAL PHYSICAL HEALTH DETERIORATION [None]
  - HAEMOPTYSIS [None]
  - PETECHIAE [None]
  - HAEMOGLOBIN DECREASED [None]
  - ANAEMIA [None]
  - GASTRITIS HAEMORRHAGIC [None]
  - THROMBOCYTOPENIA [None]
  - CARDIOVASCULAR INSUFFICIENCY [None]
